FAERS Safety Report 9280145 (Version 3)
Quarter: 2013Q4

REPORT INFORMATION
  Report Type: Spontaneous
  Country: CA (occurrence: CA)
  Receive Date: 20130509
  Receipt Date: 20131011
  Transmission Date: 20140711
  Serious: Yes (Hospitalization)
  Sender: FDA-Public Use
  Company Number: CA-AMGEN-CANSP2013032065

PATIENT
  Age: 57 Year
  Sex: Female

DRUGS (2)
  1. ENBREL [Suspect]
     Indication: RHEUMATOID ARTHRITIS
     Dosage: 25MG 2 INJECTIONS ONCE PER WEEK
     Route: 065
     Dates: start: 20130325, end: 20130530
  2. VITAMIN C                          /00008001/ [Concomitant]
     Dosage: UNK

REACTIONS (3)
  - Abdominal pain upper [Recovered/Resolved]
  - Pancreatic enzymes increased [Recovered/Resolved]
  - Arthritis [Not Recovered/Not Resolved]
